FAERS Safety Report 19971956 (Version 1)
Quarter: 2021Q4

REPORT INFORMATION
  Report Type: Spontaneous
  Country: US (occurrence: US)
  Receive Date: 20211019
  Receipt Date: 20211019
  Transmission Date: 20220303
  Serious: No
  Sender: FDA-Public Use
  Company Number: US-BAYER-2021A230325

PATIENT
  Age: 20 Year
  Sex: Female

DRUGS (1)
  1. KYLEENA [Suspect]
     Active Substance: LEVONORGESTREL
     Dosage: 17.5 ?G, CONT
     Route: 015
     Dates: start: 20210823, end: 20211011

REACTIONS (2)
  - Device expulsion [Recovered/Resolved]
  - Dysmenorrhoea [None]

NARRATIVE: CASE EVENT DATE: 20211011
